FAERS Safety Report 11795056 (Version 2)
Quarter: 2016Q1

REPORT INFORMATION
  Report Type: Spontaneous
  Country: BR (occurrence: BR)
  Receive Date: 20151202
  Receipt Date: 20160107
  Transmission Date: 20160525
  Serious: Yes (Death, Hospitalization)
  Sender: FDA-Public Use
  Company Number: BR-ELI_LILLY_AND_COMPANY-BR201511009217

PATIENT
  Sex: Female
  Weight: 71 kg

DRUGS (2)
  1. GEMZAR [Suspect]
     Active Substance: GEMCITABINE HYDROCHLORIDE
     Indication: SMALL INTESTINE CARCINOMA
     Dosage: 1782 MG, UNKNOWN
     Route: 042
     Dates: start: 20150710
  2. FAULDCISPLA [Concomitant]
     Active Substance: CISPLATIN
     Indication: SMALL INTESTINE CARCINOMA
     Dosage: 44.55 MG, UNKNOWN
     Route: 042

REACTIONS (5)
  - Pancytopenia [Not Recovered/Not Resolved]
  - Cardiogenic shock [Fatal]
  - Pulmonary sepsis [Not Recovered/Not Resolved]
  - Off label use [Unknown]
  - Septic shock [Fatal]
